FAERS Safety Report 12038463 (Version 1)
Quarter: 2016Q1

REPORT INFORMATION
  Report Type: Spontaneous
  Country: US (occurrence: None)
  Receive Date: 20160205
  Receipt Date: 20160205
  Transmission Date: 20160526
  Serious: No
  Sender: FDA-Public Use
  Company Number: None

PATIENT
  Sex: Female

DRUGS (1)
  1. HUMIRA [Suspect]
     Active Substance: ADALIMUMAB
     Indication: CROHN^S DISEASE
     Dosage: 40 MG  Q2W  SQ
     Route: 058
     Dates: start: 20151215

REACTIONS (5)
  - Dyspnoea [None]
  - Inappropriate schedule of drug administration [None]
  - Incorrect dose administered [None]
  - Skin mass [None]
  - Drug ineffective [None]
